FAERS Safety Report 17909426 (Version 1)
Quarter: 2020Q2

REPORT INFORMATION
  Report Type: Spontaneous
  Country: IN (occurrence: IN)
  Receive Date: 20200617
  Receipt Date: 20200617
  Transmission Date: 20200714
  Serious: Yes (Other)
  Sender: FDA-Public Use
  Company Number: IN-MYLANLABS-2020M1057067

PATIENT
  Age: 67 Year
  Sex: Female

DRUGS (1)
  1. ERLOTINIB [Suspect]
     Active Substance: ERLOTINIB
     Indication: SMALL INTESTINE CARCINOMA
     Dosage: 150 MILLIGRAM, QD SINCE LAST 8 MONTHS
     Route: 048

REACTIONS (3)
  - Staphylococcal infection [Recovered/Resolved]
  - Pyogenic granuloma [Recovered/Resolved]
  - Paronychia [Recovered/Resolved]
